FAERS Safety Report 22540086 (Version 1)
Quarter: 2023Q2

REPORT INFORMATION
  Report Type: Spontaneous
  Country: US (occurrence: US)
  Receive Date: 20230609
  Receipt Date: 20230609
  Transmission Date: 20230722
  Serious: No
  Sender: FDA-Public Use
  Company Number: US-SPECGX-T202300470

PATIENT
  Sex: Female

DRUGS (1)
  1. ACETAMINOPHEN\HYDROCODONE [Suspect]
     Active Substance: ACETAMINOPHEN\HYDROCODONE
     Indication: Pain
     Dosage: 7.5/325 MG
     Route: 065
     Dates: start: 20230108

REACTIONS (7)
  - Mouth swelling [Unknown]
  - Blood pressure increased [Unknown]
  - Diarrhoea [Unknown]
  - Somnolence [Unknown]
  - Headache [Unknown]
  - Dizziness [Unknown]
  - Drug ineffective [Unknown]

NARRATIVE: CASE EVENT DATE: 20230101
